FAERS Safety Report 19416363 (Version 1)
Quarter: 2021Q2

REPORT INFORMATION
  Report Type: Spontaneous
  Country: US (occurrence: US)
  Receive Date: 20210615
  Receipt Date: 20210615
  Transmission Date: 20210717
  Serious: No
  Sender: FDA-Public Use
  Company Number: US-AUROBINDO-AUR-APL-2020-056277

PATIENT
  Age: 69 Year
  Sex: Female
  Weight: 68.03 kg

DRUGS (3)
  1. FAMOTIDINE TABLET USP (OTC) 10MG [Suspect]
     Active Substance: FAMOTIDINE
     Indication: GASTROOESOPHAGEAL REFLUX DISEASE
     Dosage: 2 DOSAGE FORM, DAILY
     Route: 065
     Dates: start: 20201104
  2. LISINOPRIL. [Concomitant]
     Active Substance: LISINOPRIL
     Indication: PRODUCT USED FOR UNKNOWN INDICATION
     Dosage: UNK
     Route: 065
  3. FAMOTIDINE TABLET USP (OTC) 20MG [Suspect]
     Active Substance: FAMOTIDINE
     Indication: GASTROOESOPHAGEAL REFLUX DISEASE
     Dosage: 2 DOSAGE FORM, DAILY (2 TABLETS)
     Route: 065
     Dates: start: 20201104

REACTIONS (5)
  - Product substitution issue [Unknown]
  - Drug ineffective [Unknown]
  - Drug effect less than expected [Unknown]
  - Vomiting [Unknown]
  - Abdominal pain [Unknown]
